FAERS Safety Report 11876039 (Version 4)
Quarter: 2016Q2

REPORT INFORMATION
  Report Type: Report from Study
  Country: JP (occurrence: JP)
  Receive Date: 20151229
  Receipt Date: 20160609
  Transmission Date: 20160815
  Serious: Yes (Hospitalization, Other)
  Sender: FDA-Public Use
  Company Number: JP-BRISTOL-MYERS SQUIBB COMPANY-BMS-2015-092126

PATIENT
  Age: 93 Year
  Sex: Male

DRUGS (2)
  1. NIVOLUMAB [Suspect]
     Active Substance: NIVOLUMAB
     Dosage: 2 MG/KG, QD
     Route: 041
     Dates: start: 20151120, end: 20151120
  2. NIVOLUMAB [Suspect]
     Active Substance: NIVOLUMAB
     Indication: MALIGNANT MELANOMA
     Dosage: UNK UNK, TOTAL
     Route: 041
     Dates: start: 201504, end: 201510

REACTIONS (2)
  - Malignant neoplasm progression [Unknown]
  - Pneumonia bacterial [Recovered/Resolved with Sequelae]

NARRATIVE: CASE EVENT DATE: 20151202
